FAERS Safety Report 19679252 (Version 2)
Quarter: 2021Q3

REPORT INFORMATION
  Report Type: Report from Study
  Country: US (occurrence: US)
  Receive Date: 20210809
  Receipt Date: 20210813
  Transmission Date: 20211014
  Serious: Yes (Death, Life-Threatening, Hospitalization)
  Sender: FDA-Public Use
  Company Number: US-JNJFOC-20210812921

PATIENT
  Age: 75 Year
  Sex: Male
  Weight: 97.4 kg

DRUGS (2)
  1. APALUTAMIDE [Suspect]
     Active Substance: APALUTAMIDE
     Indication: PROSTATE CANCER
     Dosage: MEDICATION KIT NUMBER: 355?5551
     Route: 048
     Dates: start: 20201209, end: 20210704
  2. LUPRON [Suspect]
     Active Substance: LEUPROLIDE ACETATE
     Indication: PROSTATE CANCER

REACTIONS (3)
  - Right ventricular dysfunction [Fatal]
  - Pulmonary embolism [Fatal]
  - Peripheral ischaemia [Fatal]

NARRATIVE: CASE EVENT DATE: 20210801
